FAERS Safety Report 5728933-4 (Version None)
Quarter: 2008Q2

REPORT INFORMATION
  Report Type: 
  Country: None (occurrence: None)
  Receive Date: 20080430
  Receipt Date: 20080124
  Transmission Date: 20081010
  Serious: No
  Sender: FDA-Public Use
  Company Number: 2008PV034019

PATIENT
  Age: 50 Year
  Sex: Male
  Weight: 92.5338 kg

DRUGS (13)
  1. SYMLIN [Suspect]
     Indication: TYPE 2 DIABETES MELLITUS
     Dosage: 120 MCG;TID;SC ; 60 MCG;TID;SC
     Route: 058
     Dates: start: 20070301, end: 20070101
  2. SYMLIN [Suspect]
     Indication: TYPE 2 DIABETES MELLITUS
     Dosage: 120 MCG;TID;SC ; 60 MCG;TID;SC
     Route: 058
     Dates: start: 20070101
  3. NOVOLOG [Concomitant]
  4. LANTUS [Concomitant]
  5. JANUVIA [Concomitant]
  6. AMLODIPINE [Concomitant]
  7. SINEMET [Concomitant]
  8. COREG [Concomitant]
  9. ZOLOFT [Concomitant]
  10. NEXIUM [Concomitant]
  11. OMEPRAZOLE [Concomitant]
  12. TRICOR [Concomitant]
  13. REQUIP [Concomitant]

REACTIONS (4)
  - HERPES ZOSTER [None]
  - SLEEP APNOEA SYNDROME [None]
  - TEETH BRITTLE [None]
  - WEIGHT FLUCTUATION [None]
